FAERS Safety Report 7585664-6 (Version None)
Quarter: 2011Q2

REPORT INFORMATION
  Report Type: 
  Country: None (occurrence: None)
  Receive Date: 20110624
  Receipt Date: 20110610
  Transmission Date: 20111010
  Serious: Yes (Life-Threatening)
  Sender: FDA-Public Use
  Company Number: 2011MA007693

PATIENT
  Age: 29 Year
  Sex: Female

DRUGS (6)
  1. BECLOMETHASONE DIPROPIONATE [Concomitant]
  2. OMEPRAZOLE [Concomitant]
  3. VENTOLIN HFA [Concomitant]
  4. NSAID [Concomitant]
  5. NAPROXEN [Suspect]
     Dosage: 500 MG, X1, PO
     Route: 048
     Dates: start: 20110524, end: 20110524
  6. TRAMADOL HCL [Concomitant]

REACTIONS (4)
  - SWOLLEN TONGUE [None]
  - DYSPNOEA [None]
  - WHEEZING [None]
  - LIP SWELLING [None]
